FAERS Safety Report 7228304-8 (Version None)
Quarter: 2011Q1

REPORT INFORMATION
  Report Type: 
  Country: None (occurrence: None)
  Receive Date: 20110114
  Receipt Date: 20110110
  Transmission Date: 20110831
  Serious: Yes (Death)
  Sender: FDA-Public Use
  Company Number: US-ASTRAZENECA-2011SE01386

PATIENT
  Age: 44 Year
  Sex: Male

DRUGS (8)
  1. OLANZAPINE [Suspect]
  2. VALSARTAN [Concomitant]
     Route: 048
  3. GABAPENTIN [Suspect]
     Route: 048
  4. QUETIAPINE [Suspect]
     Route: 048
  5. PAROXETINE HCL [Suspect]
     Route: 048
  6. LEVOTHYROXINE [Concomitant]
     Route: 048
  7. OMEPRAZOLE [Concomitant]
     Route: 048
  8. CLONAZEPAM [Suspect]

REACTIONS (1)
  - HYPONATRAEMIA [None]
